FAERS Safety Report 4322518-2 (Version None)
Quarter: 2004Q1

REPORT INFORMATION
  Report Type: 
  Country: None (occurrence: None)
  Receive Date: 20040324
  Receipt Date: 20030714
  Transmission Date: 20041129
  Serious: Yes (Other)
  Sender: FDA-Public Use
  Company Number: 200316986GDDC

PATIENT
  Age: 59 Year
  Sex: Male
  Weight: 78 kg

DRUGS (5)
  1. UNKNOWN DRUG [Suspect]
     Indication: MYOCARDIAL INFARCTION
     Dosage: DOSE: ENOX OR PLACEBO BOLUS NOT GIVEN
     Dates: start: 20030704, end: 20030712
  2. ASPIRIN [Suspect]
     Indication: MYOCARDIAL INFARCTION
     Route: 048
     Dates: start: 20030704
  3. ALTEPLASE [Suspect]
     Indication: MYOCARDIAL INFARCTION
     Route: 042
     Dates: start: 20030704, end: 20030704
  4. PROPRANOLOL [Concomitant]
     Indication: MYOCARDIAL INFARCTION
     Route: 048
     Dates: start: 20030704
  5. CAPTOPRIL [Concomitant]
     Indication: MYOCARDIAL INFARCTION
     Route: 048
     Dates: start: 20030704

REACTIONS (2)
  - ATRIAL FIBRILLATION [None]
  - INTRACARDIAC THROMBUS [None]
